FAERS Safety Report 23310213 (Version 5)
Quarter: 2024Q4

REPORT INFORMATION
  Report Type: Spontaneous
  Country: US (occurrence: US)
  Receive Date: 20231218
  Receipt Date: 20241223
  Transmission Date: 20250115
  Serious: No
  Sender: PFIZER
  Company Number: US-PFIZER INC-202101463888

PATIENT
  Age: 76 Year
  Sex: Female
  Weight: 120.2 kg

DRUGS (1)
  1. ESTRING [Suspect]
     Active Substance: ESTRADIOL
     Dosage: UNK, EVERY 3 MONTHS (7.5 MCG/24 HOUR)
     Route: 067

REACTIONS (1)
  - Frequent bowel movements [Unknown]
